FAERS Safety Report 16446874 (Version 3)
Quarter: 2019Q3

REPORT INFORMATION
  Report Type: Spontaneous
  Country: PT (occurrence: PT)
  Receive Date: 20190618
  Receipt Date: 20190806
  Transmission Date: 20191004
  Serious: Yes (Life-Threatening, Other)
  Sender: FDA-Public Use
  Company Number: PT-MYLANLABS-M-EU-2013020030

PATIENT
  Age: 67 Year
  Sex: Female
  Weight: 63 kg

DRUGS (2)
  1. ALLERGODIL SPRAY NASALE [Suspect]
     Active Substance: AZELASTINE HYDROCHLORIDE
     Indication: RHINITIS ALLERGIC
     Dosage: DAILY DOSE: 2 DF DOSAGE FORM EVERY DAYS
     Route: 045
     Dates: start: 20130123, end: 20130124
  2. LEXOTAN [Concomitant]
     Active Substance: BROMAZEPAM
     Indication: NERVOUS SYSTEM DISORDER
     Dosage: 1.5 MILLIGRAM, QD
     Route: 048
     Dates: start: 201210

REACTIONS (6)
  - Nasal discomfort [Recovered/Resolved]
  - Dyspnoea [Recovered/Resolved]
  - Product quality issue [Recovered/Resolved]
  - Apnoea [Recovered/Resolved]
  - Burns first degree [Recovered/Resolved with Sequelae]
  - Choking sensation [Recovered/Resolved]

NARRATIVE: CASE EVENT DATE: 20130123
